FAERS Safety Report 5963889-0 (Version None)
Quarter: 2008Q4

REPORT INFORMATION
  Report Type: 
  Country: None (occurrence: None)
  Receive Date: 20081124
  Receipt Date: 20081112
  Transmission Date: 20090506
  Serious: Yes (Hospitalization)
  Sender: FDA-Public Use
  Company Number: JP-ROCHE-598008

PATIENT
  Age: 79 Year
  Sex: Female

DRUGS (1)
  1. XELODA [Suspect]
     Indication: BREAST CANCER
     Dosage: DRUG: XELODA 300.
     Route: 048
     Dates: start: 20080801, end: 20081001

REACTIONS (4)
  - AMNESIA [None]
  - ASTHENIA [None]
  - DECREASED APPETITE [None]
  - DEMENTIA [None]
